FAERS Safety Report 11738125 (Version 3)
Quarter: 2016Q1

REPORT INFORMATION
  Report Type: Spontaneous
  Country: US (occurrence: US)
  Receive Date: 20151113
  Receipt Date: 20160205
  Transmission Date: 20160525
  Serious: Yes (Other)
  Sender: FDA-Public Use
  Company Number: US-PFIZER INC-2015386058

PATIENT
  Age: 53 Year
  Sex: Female
  Weight: 61 kg

DRUGS (4)
  1. AMLODIPINE [Concomitant]
     Active Substance: AMLODIPINE BESYLATE
     Indication: HYPERTENSION
     Dosage: 5 MG, 1X/DAY
     Route: 048
     Dates: start: 2014
  2. ALPRAZOLAM. [Concomitant]
     Active Substance: ALPRAZOLAM
     Indication: SLEEP DISORDER
     Dosage: 0.5 MG, UNK
     Dates: start: 2011
  3. PREMPRO [Suspect]
     Active Substance: ESTROGENS, CONJUGATED\MEDROXYPROGESTERONE ACETATE
     Dosage: 0.3/1.5MG ONCE, DAILY
     Route: 048
     Dates: start: 20151102, end: 20151103
  4. PREMPRO [Suspect]
     Active Substance: ESTROGENS, CONJUGATED\MEDROXYPROGESTERONE ACETATE
     Indication: MENOPAUSAL SYMPTOMS
     Dosage: 0.3/1.5MG, 1X/DAY
     Route: 048
     Dates: start: 20151027, end: 20151029

REACTIONS (6)
  - Heart rate increased [Unknown]
  - Hypertension [Recovered/Resolved]
  - Night sweats [Recovered/Resolved]
  - Movement disorder [Recovered/Resolved]
  - Asthenia [Recovered/Resolved]
  - Feeling abnormal [Recovered/Resolved]

NARRATIVE: CASE EVENT DATE: 20151102
